FAERS Safety Report 6182964-1 (Version None)
Quarter: 2009Q2

REPORT INFORMATION
  Report Type: 
  Country: None (occurrence: None)
  Receive Date: 20090507
  Receipt Date: 20090428
  Transmission Date: 20091009
  Serious: Yes (Other)
  Sender: FDA-Public Use
  Company Number: SE-AVENTIS-200820643GDDC

PATIENT
  Age: 50 Year
  Sex: Male

DRUGS (4)
  1. ARAVA [Suspect]
     Route: 048
     Dates: start: 20080601, end: 20080920
  2. PREDNISOLONE [Concomitant]
     Route: 048
  3. ACETAMINOPHEN [Concomitant]
     Dosage: DOSE: UNK
  4. ORUDIS                             /00321701/ [Concomitant]
     Dosage: DOSE: UNK

REACTIONS (1)
  - VOCAL CORD PARALYSIS [None]
